FAERS Safety Report 9285544 (Version 1)
Quarter: 2013Q2

REPORT INFORMATION
  Report Type: Spontaneous
  Country: IN (occurrence: IN)
  Receive Date: 20130513
  Receipt Date: 20130513
  Transmission Date: 20140414
  Serious: Yes (Hospitalization)
  Sender: FDA-Public Use
  Company Number: IN-ROXANE LABORATORIES, INC.-2013-RO-00719RO

PATIENT
  Age: 35 Year
  Sex: Female

DRUGS (5)
  1. AZATHIOPRINE [Suspect]
     Dosage: 100 MG
  2. PREDNISOLONE [Suspect]
     Dosage: 10 MG
  3. ENALAPRIL [Suspect]
  4. WARFARIN [Suspect]
  5. ASPIRIN [Suspect]

REACTIONS (1)
  - Strongyloidiasis [Recovered/Resolved]
